FAERS Safety Report 5042305-X (Version None)
Quarter: 2006Q2

REPORT INFORMATION
  Report Type: 
  Country: None (occurrence: None)
  Receive Date: 20060627
  Receipt Date: 20060614
  Transmission Date: 20061013
  Serious: No
  Sender: FDA-Public Use
  Company Number: 06H-163-0308469-00

PATIENT
  Age: 56 Year
  Sex: Male

DRUGS (1)
  1. NITROGLYCERIN [Suspect]
     Indication: CORONARY ARTERY DISEASE
     Dosage: 100 MG, INJECTION

REACTIONS (3)
  - CORONARY ARTERIAL STENT INSERTION [None]
  - MECHANICAL COMPLICATION OF IMPLANT [None]
  - SURGICAL PROCEDURE REPEATED [None]
